FAERS Safety Report 4919471-7 (Version None)
Quarter: 2006Q1

REPORT INFORMATION
  Report Type: 
  Country: None (occurrence: None)
  Receive Date: 20060222
  Receipt Date: 20050921
  Transmission Date: 20060701
  Serious: Yes (Hospitalization)
  Sender: FDA-Public Use
  Company Number: US-MERCK-0509USA03421

PATIENT
  Age: 55 Year
  Sex: Female
  Weight: 105 kg

DRUGS (8)
  1. VIOXX [Suspect]
     Indication: RHEUMATOID ARTHRITIS
     Route: 048
     Dates: start: 20001101, end: 20040929
  2. VIOXX [Suspect]
     Indication: OEDEMA PERIPHERAL
     Route: 048
     Dates: start: 20001101, end: 20040929
  3. GLUCOPHAGE [Concomitant]
     Indication: DIABETES MELLITUS
     Route: 065
  4. ACCUPRIL [Concomitant]
     Indication: HYPERTENSION
     Route: 065
     Dates: start: 19900101
  5. ESTRACE [Concomitant]
     Route: 065
  6. LASIX [Concomitant]
     Indication: POLYURIA
     Route: 065
  7. POTASSIUM (UNSPECIFIED) [Concomitant]
     Indication: POLYURIA
     Route: 065
  8. HUMALOG [Concomitant]
     Indication: DIABETES MELLITUS
     Route: 065

REACTIONS (6)
  - ADVERSE EVENT [None]
  - CEREBROVASCULAR ACCIDENT [None]
  - HEMIPARESIS [None]
  - ROTATOR CUFF SYNDROME [None]
  - SLEEP APNOEA SYNDROME [None]
  - UPPER RESPIRATORY TRACT CONGESTION [None]
